FAERS Safety Report 25122934 (Version 1)
Quarter: 2025Q1

REPORT INFORMATION
  Report Type: Spontaneous
  Country: US (occurrence: US)
  Receive Date: 20250326
  Receipt Date: 20250326
  Transmission Date: 20250409
  Serious: Yes (Death)
  Sender: MYLAN
  Company Number: US-MYLANLABS-2025M1025526

PATIENT

DRUGS (1)
  1. VANCOMYCIN HYDROCHLORIDE [Suspect]
     Active Substance: VANCOMYCIN HYDROCHLORIDE
     Indication: Product used for unknown indication

REACTIONS (4)
  - Drug reaction with eosinophilia and systemic symptoms [Fatal]
  - Mixed liver injury [Fatal]
  - Renal injury [Fatal]
  - Multiple organ dysfunction syndrome [Fatal]
